FAERS Safety Report 7401144-2 (Version None)
Quarter: 2011Q2

REPORT INFORMATION
  Report Type: 
  Country: None (occurrence: None)
  Receive Date: 20110407
  Receipt Date: 20110308
  Transmission Date: 20111010
  Serious: Yes (Other)
  Sender: FDA-Public Use
  Company Number: US-BAYER-2011-006484

PATIENT
  Sex: Female
  Weight: 90.249 kg

DRUGS (4)
  1. YAZ [Suspect]
     Indication: ORAL CONTRACEPTION
     Dosage: UNK
     Dates: start: 20090605, end: 20090807
  2. IBUPROFEN [Concomitant]
     Dosage: UNK
     Dates: start: 20090101
  3. NAPROXEN [Concomitant]
     Dosage: UNK
     Dates: start: 20090101
  4. YASMIN [Suspect]
     Indication: ORAL CONTRACEPTION
     Dosage: UNK
     Route: 048
     Dates: start: 20090605, end: 20090807

REACTIONS (7)
  - GASTROOESOPHAGEAL REFLUX DISEASE [None]
  - ABDOMINAL PAIN [None]
  - UTERINE LEIOMYOMA [None]
  - GALLBLADDER DISORDER [None]
  - GALLBLADDER PAIN [None]
  - DIARRHOEA [None]
  - ABDOMINAL PAIN UPPER [None]
